FAERS Safety Report 14578491 (Version 1)
Quarter: 2018Q1

REPORT INFORMATION
  Report Type: Spontaneous
  Country: US (occurrence: US)
  Receive Date: 20180227
  Receipt Date: 20180227
  Transmission Date: 20180509
  Serious: No
  Sender: FDA-Public Use
  Company Number: US-BAYER-2018-038604

PATIENT
  Age: 61 Year
  Sex: Female
  Weight: 64 kg

DRUGS (4)
  1. TYLENOL EXTRA STRENGTH [Concomitant]
     Active Substance: ACETAMINOPHEN
  2. ALEVE [Suspect]
     Active Substance: NAPROXEN SODIUM
     Indication: PAIN
     Dosage: 1 TABLET EVERY 8 HOURS
     Route: 048
     Dates: start: 201801
  3. ALEVE TENS DEVICE DIRECT THERAPY UNIT [Suspect]
     Active Substance: DEVICE
     Indication: PAIN
     Dates: start: 20180217, end: 201802
  4. ALEVE [Suspect]
     Active Substance: NAPROXEN SODIUM
     Dosage: 1 TABLET EVERY 8 HOURS
     Route: 048
     Dates: start: 201801

REACTIONS (5)
  - Device ineffective [Unknown]
  - Incorrect drug administration duration [Unknown]
  - Intentional product use issue [Unknown]
  - Device use issue [Unknown]
  - Inappropriate schedule of drug administration [Unknown]

NARRATIVE: CASE EVENT DATE: 201801
